FAERS Safety Report 11607453 (Version 2)
Quarter: 2016Q4

REPORT INFORMATION
  Report Type: Report from Study
  Country: CA (occurrence: CA)
  Receive Date: 20151007
  Receipt Date: 20161103
  Transmission Date: 20170206
  Serious: Yes (Death, Other)
  Sender: FDA-Public Use
  Company Number: CA-REGENERON PHARMACEUTICALS, INC.-2014-20288

PATIENT

DRUGS (18)
  1. EYLEA [Suspect]
     Active Substance: AFLIBERCEPT
     Dosage: UNK, RIGHT EYE
     Route: 031
     Dates: start: 20150217, end: 20150217
  2. EYLEA [Suspect]
     Active Substance: AFLIBERCEPT
     Dosage: UNK, RIGHT EYE
     Route: 031
     Dates: start: 20150822, end: 20150822
  3. EYLEA [Suspect]
     Active Substance: AFLIBERCEPT
     Dosage: UNK, RIGHT EYE
     Route: 031
     Dates: start: 20141202, end: 20141202
  4. EYLEA [Suspect]
     Active Substance: AFLIBERCEPT
     Dosage: UNK, RIGHT EYE
     Route: 031
     Dates: start: 20150616, end: 20150616
  5. EYLEA [Suspect]
     Active Substance: AFLIBERCEPT
     Dosage: UNK, RIGHT EYE
     Route: 031
     Dates: start: 20150929, end: 20150929
  6. EYLEA [Suspect]
     Active Substance: AFLIBERCEPT
     Dosage: UNK, RIGHT EYE
     Route: 031
     Dates: start: 20160209, end: 20160209
  7. EYLEA [Suspect]
     Active Substance: AFLIBERCEPT
     Dosage: UNK, RIGHT EYE
     Route: 031
     Dates: start: 20140919, end: 20140919
  8. EYLEA [Suspect]
     Active Substance: AFLIBERCEPT
     Dosage: UNK, RIGHT EYE
     Route: 031
     Dates: start: 20150319, end: 20150319
  9. EYLEA [Suspect]
     Active Substance: AFLIBERCEPT
     Dosage: UNK, RIGHT EYE
     Route: 031
     Dates: start: 20151206, end: 20151206
  10. EYLEA [Suspect]
     Active Substance: AFLIBERCEPT
     Dosage: UNK, RIGHT EYE
     Route: 031
     Dates: start: 20150416, end: 20150416
  11. EYLEA [Suspect]
     Active Substance: AFLIBERCEPT
     Dosage: UNK, RIGHT EYE
     Route: 031
     Dates: start: 20141103, end: 20141103
  12. EYLEA [Suspect]
     Active Substance: AFLIBERCEPT
     Dosage: UNK, RIGHT EYE
     Route: 031
     Dates: start: 20150113, end: 20150113
  13. EYLEA [Suspect]
     Active Substance: AFLIBERCEPT
     Dosage: UNK, RIGHT EYE
     Route: 031
     Dates: start: 20150720, end: 20150720
  14. EYLEA [Suspect]
     Active Substance: AFLIBERCEPT
     Dosage: UNK, RIGHT EYE
     Route: 031
     Dates: start: 20151102, end: 20151102
  15. EYLEA [Suspect]
     Active Substance: AFLIBERCEPT
     Dosage: UNK, RIGHT EYE
     Route: 031
     Dates: start: 20160116, end: 20160115
  16. EYLEA [Suspect]
     Active Substance: AFLIBERCEPT
     Indication: NEOVASCULAR AGE-RELATED MACULAR DEGENERATION
     Dosage: UNK, RIGHT EYE
     Route: 031
     Dates: start: 20140620, end: 20140620
  17. EYLEA [Suspect]
     Active Substance: AFLIBERCEPT
     Dosage: UNK, RIGHT EYE
     Route: 031
     Dates: start: 20140715, end: 20140715
  18. EYLEA [Suspect]
     Active Substance: AFLIBERCEPT
     Dosage: UNK, RIGHT EYE
     Route: 031
     Dates: start: 20150515, end: 20150515

REACTIONS (5)
  - Fall [Unknown]
  - Off label use [Unknown]
  - Facial bones fracture [Unknown]
  - Product use issue [Unknown]
  - Death [Fatal]

NARRATIVE: CASE EVENT DATE: 20140804
